FAERS Safety Report 15330653 (Version 1)
Quarter: 2018Q3

REPORT INFORMATION
  Report Type: Spontaneous
  Country: US (occurrence: US)
  Receive Date: 20180829
  Receipt Date: 20180829
  Transmission Date: 20181010
  Serious: Yes (Hospitalization, Other)
  Sender: FDA-Public Use
  Company Number: US-JNJFOC-20180837270

PATIENT
  Age: 51 Year
  Sex: Male

DRUGS (1)
  1. INVOKANA [Suspect]
     Active Substance: CANAGLIFLOZIN
     Indication: DIABETES MELLITUS INADEQUATE CONTROL
     Route: 048
     Dates: start: 20140415

REACTIONS (4)
  - Cellulitis [Recovering/Resolving]
  - Osteomyelitis [Recovering/Resolving]
  - Foot amputation [Unknown]
  - Diabetic foot [Recovering/Resolving]

NARRATIVE: CASE EVENT DATE: 201501
